FAERS Safety Report 9879654 (Version 2)
Quarter: 2014Q1

REPORT INFORMATION
  Report Type: Spontaneous
  Country: US (occurrence: US)
  Receive Date: 20140206
  Receipt Date: 20140206
  Transmission Date: 20141002
  Serious: Yes (Other)
  Sender: FDA-Public Use
  Company Number: US-LUNDBECK-DKLU1072229

PATIENT
  Age: 8 Month
  Sex: Female

DRUGS (6)
  1. SABRIL (FOR ORAL SOLUTION) [Suspect]
     Indication: INFANTILE SPASMS
     Route: 048
     Dates: start: 20110304, end: 20110311
  2. SABRIL (FOR ORAL SOLUTION) [Suspect]
     Indication: TUBEROUS SCLEROSIS
     Route: 048
     Dates: start: 20110311, end: 20110318
  3. SABRIL (FOR ORAL SOLUTION) [Suspect]
     Route: 048
     Dates: start: 20110318
  4. SABRIL (FOR ORAL SOLUTION) [Suspect]
     Dates: end: 20140128
  5. TOPAMAX [Concomitant]
     Indication: CONVULSION
  6. KEPPRA [Concomitant]
     Indication: CONVULSION

REACTIONS (3)
  - Retinogram abnormal [Not Recovered/Not Resolved]
  - Visual impairment [Unknown]
  - Somnolence [Unknown]
